FAERS Safety Report 5976982-3 (Version None)
Quarter: 2008Q4

REPORT INFORMATION
  Report Type: 
  Country: None (occurrence: None)
  Receive Date: 20081203
  Receipt Date: 20080917
  Transmission Date: 20090506
  Serious: No
  Sender: FDA-Public Use
  Company Number: US-AMGEN-KDL308362

PATIENT
  Sex: Female

DRUGS (3)
  1. ENBREL [Suspect]
     Indication: RHEUMATOID ARTHRITIS
     Route: 058
     Dates: start: 20070327
  2. PLAQUENIL [Concomitant]
     Dates: start: 20070101
  3. SULFASALAZINE [Concomitant]
     Dates: start: 20070101

REACTIONS (8)
  - ARTHRALGIA [None]
  - DECREASED APPETITE [None]
  - DYSGEUSIA [None]
  - HEADACHE [None]
  - JOINT SWELLING [None]
  - MALAISE [None]
  - NAUSEA [None]
  - WEIGHT DECREASED [None]
